FAERS Safety Report 14287264 (Version 4)
Quarter: 2018Q2

REPORT INFORMATION
  Report Type: Report from Study
  Country: DE (occurrence: DE)
  Receive Date: 20171214
  Receipt Date: 20180423
  Transmission Date: 20180711
  Serious: Yes (Hospitalization, Other)
  Sender: FDA-Public Use
  Company Number: DE-PFIZER INC-2017527492

PATIENT
  Sex: Female
  Weight: 97.5 kg

DRUGS (16)
  1. PHYSIOGEL [Concomitant]
     Dosage: UNK, BID (IN THE MORNING AND IN THE EVENING
     Route: 061
     Dates: start: 20141111, end: 20150713
  2. ADVANTAN [Concomitant]
     Active Substance: METHYLPREDNISOLONE ACEPONATE
     Dosage: 0.5 %, UNK,  (IN THE MORNING AND EVENING)
     Dates: start: 20141106
  3. SIMVASTATIN. [Concomitant]
     Active Substance: SIMVASTATIN
     Indication: BLOOD CHOLESTEROL INCREASED
     Dosage: 20 MG (0-0-1), QD
     Dates: start: 20150626
  4. LATANOPROST. [Concomitant]
     Active Substance: LATANOPROST
     Indication: EYE DISORDER
     Dosage: DAILY DOSE: 1 DF DOSAGE FORM EVERY DAY
     Dates: start: 20110224
  5. EXEMESTANE. [Suspect]
     Active Substance: EXEMESTANE
     Indication: BREAST CANCER METASTATIC
     Dosage: 25 MG, QD (0-1-0)
     Route: 048
     Dates: start: 20141020
  6. AFINITOR [Suspect]
     Active Substance: EVEROLIMUS
     Dosage: 5 MG, 1X/DAY
     Route: 048
     Dates: start: 20150822, end: 20150828
  7. METOPROLOL. [Concomitant]
     Active Substance: METOPROLOL
     Dosage: DAILY DOSE: 47.5 MG MILLIGRAM(S) EVERY DAY
     Dates: start: 20110909
  8. PANTOZOL [Concomitant]
     Active Substance: PANTOPRAZOLE SODIUM
     Dosage: DAILY DOSE: 40 MG MILLIGRAM(S) EVERY DAY
     Dates: start: 20150303
  9. ZOMETA [Concomitant]
     Active Substance: ZOLEDRONIC ACID
     Dosage: 4 MG, UNK (EVERY HALF A YEAR, LAST ADMINISTRATION WAS ON 27 JUN 15)
     Dates: start: 20101201, end: 20150627
  10. HYDROCORTISON /00028601/ [Concomitant]
     Active Substance: HYDROCORTISONE
     Dosage: 5 OT, UNK (IN THE MORNING AND EVENING)
     Route: 065
     Dates: start: 20141111
  11. AFINITOR [Suspect]
     Active Substance: EVEROLIMUS
     Indication: BREAST CANCER METASTATIC
     Dosage: 10 MG (0-1-0), QD
     Route: 048
     Dates: start: 20141020, end: 20150201
  12. AFINITOR [Suspect]
     Active Substance: EVEROLIMUS
     Dosage: DAILY DOSE: 5 MG MILLIGRAM(S) EVERY DAY
     Route: 048
     Dates: start: 20150324, end: 20150401
  13. AFINITOR [Suspect]
     Active Substance: EVEROLIMUS
     Dosage: 5 MG, 1X/DAY
     Dates: start: 20150411, end: 20150703
  14. MAGNESIUM [Concomitant]
     Active Substance: MAGNESIUM
     Dosage: DAILY DOSE: 300 MG MILLIGRAM(S) EVERY DAY
     Dates: start: 20130314
  15. TRAMADOL. [Concomitant]
     Active Substance: TRAMADOL
     Dosage: 20 OT, UNK
     Dates: start: 20150303
  16. EXEMESTAN 1 A PHARMA [Concomitant]
     Active Substance: EXEMESTANE
     Dosage: UNK, 2X/DAY
     Dates: start: 20141111, end: 20150828

REACTIONS (18)
  - Skin burning sensation [Recovered/Resolved]
  - Pruritus [Recovered/Resolved]
  - Lung infiltration [Recovered/Resolved]
  - Diabetes mellitus inadequate control [Recovered/Resolved]
  - Cough [Recovered/Resolved]
  - Dysgeusia [Recovered/Resolved]
  - Blood glucose increased [Recovering/Resolving]
  - Rash [Recovered/Resolved]
  - Nasopharyngitis [Recovered/Resolved]
  - Stomatitis [Recovered/Resolved]
  - Wheezing [Recovered/Resolved]
  - C-reactive protein increased [Unknown]
  - Cough [Recovered/Resolved]
  - Pneumonitis [Recovered/Resolved]
  - Grunting [Recovered/Resolved]
  - Pneumonitis [Recovered/Resolved]
  - Cough [Recovered/Resolved]
  - Oxygen saturation decreased [Unknown]

NARRATIVE: CASE EVENT DATE: 20141106
